FAERS Safety Report 8951592 (Version 1)
Quarter: 2012Q4

REPORT INFORMATION
  Report Type: Report from Study
  Country: FR (occurrence: FR)
  Receive Date: 20121204
  Receipt Date: 20121204
  Transmission Date: 20130627
  Serious: Yes (Other)
  Sender: FDA-Public Use
  Company Number: FR-PFIZER INC-2012299801

PATIENT
  Age: 61 Year
  Sex: Male
  Weight: 101 kg

DRUGS (2)
  1. ARACYTINE [Suspect]
     Indication: ACUTE MYELOID LEUKEMIA
     Dosage: 200 mg/m2, 1x/day (400 mg/day)
     Route: 042
     Dates: start: 20100730, end: 20100805
  2. DAUNORUBICIN [Suspect]
     Indication: ACUTE MYELOID LEUKEMIA
     Dosage: 60 mg/m2, 1x/day,(120 mg/day
     Route: 042
     Dates: start: 20100730, end: 20100801

REACTIONS (1)
  - Aspergillosis [Recovering/Resolving]
